FAERS Safety Report 9887168 (Version 1)
Quarter: 2014Q1

REPORT INFORMATION
  Report Type: Spontaneous
  Country: US (occurrence: US)
  Receive Date: 20140211
  Receipt Date: 20140211
  Transmission Date: 20141002
  Serious: No
  Sender: FDA-Public Use
  Company Number: US-BIOGENIDEC-2014BI009643

PATIENT
  Age: 47 Year
  Sex: Female

DRUGS (9)
  1. TECFIDERA [Suspect]
     Indication: MULTIPLE SCLEROSIS
     Route: 048
     Dates: start: 20140118
  2. TECFIDERA [Suspect]
     Indication: MULTIPLE SCLEROSIS
     Route: 048
     Dates: start: 20140125
  3. DIAZEPAM [Concomitant]
  4. LASIX [Concomitant]
  5. LINZESS [Concomitant]
  6. LISINOPRIL [Concomitant]
  7. VITAMIN A [Concomitant]
  8. VITAMIN D [Concomitant]
  9. VITAMIN E [Concomitant]

REACTIONS (1)
  - Pain of skin [Unknown]
